FAERS Safety Report 24223684 (Version 1)
Quarter: 2024Q3

REPORT INFORMATION
  Report Type: Spontaneous
  Country: MX (occurrence: MX)
  Receive Date: 20240819
  Receipt Date: 20240819
  Transmission Date: 20241016
  Serious: Yes (Death, Other)
  Sender: BRISTOL MYERS SQUIBB
  Company Number: MX-BRISTOL-MYERS SQUIBB COMPANY-2024-130682

PATIENT
  Sex: Female

DRUGS (1)
  1. REVLIMID [Suspect]
     Active Substance: LENALIDOMIDE
     Indication: Product used for unknown indication
     Dosage: DOSE : INFORMATION UNAVAILABLE;     FREQ : INFORMATION UNAVAILABLE

REACTIONS (1)
  - Death [Fatal]
